FAERS Safety Report 19756233 (Version 1)
Quarter: 2021Q3

REPORT INFORMATION
  Report Type: Spontaneous
  Country: US (occurrence: US)
  Receive Date: 20210827
  Receipt Date: 20210827
  Transmission Date: 20211014
  Serious: Yes (Other)
  Sender: FDA-Public Use
  Company Number: US-PFM-2021-07936

PATIENT
  Sex: Male
  Weight: 5 kg

DRUGS (1)
  1. HEMANGEOL [Suspect]
     Active Substance: PROPRANOLOL HYDROCHLORIDE
     Indication: HAEMANGIOMA
     Dosage: 2 ML, BID (2/DAY)
     Route: 048

REACTIONS (1)
  - Haematochezia [Not Recovered/Not Resolved]
